FAERS Safety Report 6510818-7 (Version None)
Quarter: 2009Q4

REPORT INFORMATION
  Report Type: 
  Country: None (occurrence: None)
  Receive Date: 20091222
  Receipt Date: 20090112
  Transmission Date: 20100525
  Serious: Yes (Other)
  Sender: FDA-Public Use
  Company Number: US-ASTRAZENECA-2009UW00991

PATIENT
  Age: 60 Year
  Sex: Female

DRUGS (6)
  1. CRESTOR [Suspect]
     Indication: BLOOD CHOLESTEROL INCREASED
     Route: 048
     Dates: start: 20061201
  2. CRESTOR [Suspect]
     Route: 048
     Dates: start: 20061201, end: 20081001
  3. NEXIUM [Concomitant]
     Route: 048
  4. TOPRAMAX [Concomitant]
  5. GENERIC PEPSID [Concomitant]
  6. FLEXTOR PATCH [Concomitant]

REACTIONS (9)
  - ACTIVITIES OF DAILY LIVING IMPAIRED [None]
  - ARTHRALGIA [None]
  - FALL [None]
  - FRACTURE [None]
  - MYOPATHY [None]
  - PAIN IN EXTREMITY [None]
  - RENAL FAILURE [None]
  - SPINAL COLUMN INJURY [None]
  - VERTIGO [None]
